FAERS Safety Report 5376440-3 (Version None)
Quarter: 2007Q2

REPORT INFORMATION
  Report Type: 
  Country: None (occurrence: None)
  Receive Date: 20070627
  Receipt Date: 20070316
  Transmission Date: 20071010
  Serious: Yes (Other)
  Sender: FDA-Public Use
  Company Number: 2007021202

PATIENT
  Sex: Male
  Weight: 102.1 kg

DRUGS (6)
  1. NICOTINE [Suspect]
     Indication: SMOKING CESSATION THERAPY
     Dosage: (1 D)
     Route: 055
     Dates: start: 20051001
  2. TOPROL-XL [Concomitant]
  3. ZESTRIL [Concomitant]
  4. ZOCOR [Concomitant]
  5. ANTIHYPERTENSIVES (ANTIHYPERTENSIVES) [Concomitant]
  6. BETA BLOCKING AGENTS (BETA BLOCKING AGENTS) [Concomitant]

REACTIONS (4)
  - DRUG DEPENDENCE [None]
  - DRUG TOXICITY [None]
  - NERVOUSNESS [None]
  - WHITE BLOOD CELL COUNT INCREASED [None]
